FAERS Safety Report 9095211 (Version 1)
Quarter: 2013Q1

REPORT INFORMATION
  Report Type: Spontaneous
  Country: IT (occurrence: None)
  Receive Date: 20130123
  Receipt Date: 20130123
  Transmission Date: 20140127
  Serious: Yes (Hospitalization)
  Sender: FDA-Public Use
  Company Number: AUR-APL-2013-00823

PATIENT
  Age: 67 Year
  Sex: Male

DRUGS (3)
  1. ATENOLOL (ATENOLOL) [Suspect]
     Indication: HYPERTENSION
     Route: 048
     Dates: start: 20121016, end: 20121216
  2. IPERTEN (MANIDIPINE HYDROCHLORIDE) [Concomitant]
  3. OLMEGAN (OLMESARTAN) [Concomitant]

REACTIONS (2)
  - Tachycardia [None]
  - Palpitations [None]
